FAERS Safety Report 22191257 (Version 4)
Quarter: 2023Q2

REPORT INFORMATION
  Report Type: Spontaneous
  Country: US (occurrence: US)
  Receive Date: 20230410
  Receipt Date: 20230522
  Transmission Date: 20230721
  Serious: No
  Sender: FDA-Public Use
  Company Number: US-PFIZER INC-202300131378

PATIENT
  Age: 4 Month
  Sex: Female
  Weight: 4.54 kg

DRUGS (5)
  1. GENOTROPIN [Suspect]
     Active Substance: SOMATROPIN
     Indication: Prader-Willi syndrome
     Dosage: 0.2 MG, ALTERNATE DAY (ALTERNATING WITH 0.3MG)
  2. GENOTROPIN [Suspect]
     Active Substance: SOMATROPIN
     Dosage: 0.3 MG, ALTERNATE DAY (ALTERNATING WITH 0.2MG)
  3. GENOTROPIN [Suspect]
     Active Substance: SOMATROPIN
     Dosage: 0.1 MG, DAILY
  4. LEVOCARNITINE [LEVOCARNITINE HYDROCHLORIDE] [Concomitant]
     Indication: Prader-Willi syndrome
     Dosage: UNK
  5. POLY-VI-SOL [ASCORBIC ACID;ERGOCALCIFEROL;NICOTINIC ACID;RETINOL;RIBOF [Concomitant]
     Indication: Premature baby
     Dosage: UNK

REACTIONS (7)
  - Wrong technique in device usage process [Unknown]
  - Drug dose omission by device [Unknown]
  - Accidental exposure to product [Unknown]
  - Exposure via skin contact [Unknown]
  - Incorrect dose administered by device [Unknown]
  - Device leakage [Unknown]
  - Device defective [Unknown]
